FAERS Safety Report 13460213 (Version 2)
Quarter: 2017Q2

REPORT INFORMATION
  Report Type: Spontaneous
  Country: FR (occurrence: FR)
  Receive Date: 20170420
  Receipt Date: 20170621
  Transmission Date: 20170830
  Serious: Yes (Death)
  Sender: FDA-Public Use
  Company Number: FR-AUROBINDO-AUR-APL-2017-32620

PATIENT
  Age: 67 Year
  Sex: Female

DRUGS (11)
  1. ALPRAZOLAM MYLAN [Suspect]
     Active Substance: ALPRAZOLAM
     Indication: PSYCHIATRIC SYMPTOM
     Dosage: 2.5 DF, DAILY
     Route: 065
  2. DOGMATIL [Suspect]
     Active Substance: SULPIRIDE
     Indication: PSYCHOTIC DISORDER
     Dosage: 5 ML, 3 TIMES A DAY
     Route: 048
     Dates: start: 201301
  3. PARKINANE LP [Suspect]
     Active Substance: TRIHEXYPHENIDYL HYDROCHLORIDE
     Indication: PARKINSONISM
     Dosage: 5 MG, TWO TIMES A DAY
     Route: 048
     Dates: start: 201301
  4. LASILIX                            /00032601/ [Suspect]
     Active Substance: FUROSEMIDE
     Indication: OEDEMA
     Dosage: 20 MG, ONCE A DAY
     Route: 048
  5. MOVICOL [Suspect]
     Active Substance: POLYETHYLENE GLYCOL 3350\POTASSIUM CHLORIDE\SODIUM BICARBONATE\SODIUM CHLORIDE
     Indication: CONSTIPATION
     Dosage: 1 DF, ONCE A DAY
     Route: 048
  6. DOGMATIL [Suspect]
     Active Substance: SULPIRIDE
     Dosage: 5 ML, 3 TIMES A DAY
     Route: 048
  7. RISPERIDONE MYLAN [Suspect]
     Active Substance: RISPERIDONE
     Indication: PSYCHOTIC DISORDER
     Dosage: 3 MG, DAILY
     Route: 065
     Dates: start: 20140219
  8. PAROXETINE ARROW [Suspect]
     Active Substance: PAROXETINE
     Indication: DEPRESSION
     Dosage: 20 MG, 3 TIMES A DAY
     Route: 065
  9. DUPHASTON [Suspect]
     Active Substance: DYDROGESTERONE
     Indication: PRODUCT USED FOR UNKNOWN INDICATION
     Dosage: 10 DF, MONTHLY
     Route: 065
  10. THERALEN [Suspect]
     Active Substance: TRIMEPRAZINE
     Indication: PSYCHIATRIC SYMPTOM
     Dosage: 15 DF, ONCE A DAY
     Route: 048
  11. EXACYL [Suspect]
     Active Substance: TRANEXAMIC ACID
     Indication: PRODUCT USED FOR UNKNOWN INDICATION
     Dosage: WHEN NEEDED

REACTIONS (3)
  - Oxygen saturation decreased [Fatal]
  - Hypotension [Fatal]
  - Hypopnoea [Fatal]

NARRATIVE: CASE EVENT DATE: 20170320
